FAERS Safety Report 10020872 (Version 1)
Quarter: 2014Q1

REPORT INFORMATION
  Report Type: Spontaneous
  Country: US (occurrence: None)
  Receive Date: 20140318
  Receipt Date: 20140318
  Transmission Date: 20141002
  Serious: Yes (Hospitalization)
  Sender: FDA-Public Use
  Company Number: None

PATIENT
  Age: 27 Year
  Sex: Male
  Weight: 77.3 kg

DRUGS (1)
  1. GILENYA (FINGOLIMOD) [Suspect]
     Indication: MULTIPLE SCLEROSIS
     Route: 048

REACTIONS (8)
  - Blood urine present [None]
  - Musculoskeletal pain [None]
  - Pain in extremity [None]
  - Chest pain [None]
  - Fatigue [None]
  - Protein urine present [None]
  - Rhabdomyolysis [None]
  - Hepatitis acute [None]
